FAERS Safety Report 16093558 (Version 1)
Quarter: 2019Q1

REPORT INFORMATION
  Report Type: Spontaneous
  Country: US (occurrence: US)
  Receive Date: 20190215
  Receipt Date: 20190215
  Transmission Date: 20190418
  Serious: No
  Sender: FDA-Public Use
  Company Number: None

PATIENT
  Age: 11 Year
  Sex: Female
  Weight: 39.92 kg

DRUGS (1)
  1. ENBREL [Suspect]
     Active Substance: ETANERCEPT
     Indication: PSORIASIS
     Dosage: OTHER DOSE:25MG (1ML)./15MG;?
     Route: 030
     Dates: start: 201509

REACTIONS (3)
  - Gait disturbance [None]
  - Pain [None]
  - Arthritis [None]
